FAERS Safety Report 5006217-X (Version None)
Quarter: 2006Q1

REPORT INFORMATION
  Report Type: 
  Country: None (occurrence: None)
  Receive Date: 20060327
  Receipt Date: 20060131
  Transmission Date: 20060701
  Serious: No
  Sender: FDA-Public Use
  Company Number: 221654

PATIENT
  Age: 70 Year
  Sex: Female

DRUGS (2)
  1. AVASTIN [Suspect]
     Indication: BREAST CANCER METASTATIC
  2. TAXOL [Concomitant]

REACTIONS (4)
  - COUGH [None]
  - POLLAKIURIA [None]
  - SNEEZING [None]
  - VISION BLURRED [None]
